FAERS Safety Report 9630961 (Version 1)
Quarter: 2013Q4

REPORT INFORMATION
  Report Type: Spontaneous
  Country: US (occurrence: None)
  Receive Date: 20131016
  Receipt Date: 20131016
  Transmission Date: 20140711
  Serious: Yes (Hospitalization)
  Sender: FDA-Public Use
  Company Number: 2013US001683

PATIENT
  Age: 45 Year
  Sex: Male
  Weight: 71 kg

DRUGS (7)
  1. ICLUSING [Suspect]
     Indication: CHRONIC MYELOID LEUKAEMIA
     Route: 048
     Dates: start: 20130315, end: 20130520
  2. BACTRIM DS (SULFAMETHOXAZOLE, TRIMETHOPRIM) [Concomitant]
  3. ACYCLOVIR (ACYCLOVIR) [Concomitant]
  4. FOLIC ACID [Concomitant]
  5. MAGNESIUM OXIDE [Concomitant]
  6. MULTIVITAMIN [Concomitant]
  7. POLYETHYLENE GLYCOL [Concomitant]

REACTIONS (6)
  - Renal failure [None]
  - Hypercalcaemia [None]
  - Bone pain [None]
  - Liver function test abnormal [None]
  - Disease progression [None]
  - Drug ineffective [None]
